FAERS Safety Report 14069418 (Version 1)
Quarter: 2017Q4

REPORT INFORMATION
  Report Type: Spontaneous
  Country: FR (occurrence: FR)
  Receive Date: 20171010
  Receipt Date: 20171010
  Transmission Date: 20180321
  Serious: Yes (Disabling)
  Sender: FDA-Public Use
  Company Number: FR-MERCK KGAA-2029454

PATIENT
  Age: 65 Year
  Sex: Female

DRUGS (1)
  1. NOVOTHYROX [Suspect]
     Active Substance: LEVOTHYROXINE SODIUM
     Indication: AUTOIMMUNE THYROIDITIS

REACTIONS (15)
  - Myalgia [Unknown]
  - Headache [Unknown]
  - Thirst [Unknown]
  - Dyspepsia [Unknown]
  - Tachycardia [Unknown]
  - Fatigue [Unknown]
  - Dizziness [Unknown]
  - Eye irritation [Unknown]
  - Alopecia [Unknown]
  - Tooth injury [Unknown]
  - Gastrointestinal pain [Unknown]
  - Vomiting [Unknown]
  - Insomnia [Unknown]
  - Diarrhoea [Unknown]
  - Nausea [Unknown]
